FAERS Safety Report 22369985 (Version 1)
Quarter: 2023Q2

REPORT INFORMATION
  Report Type: Other
  Country: US (occurrence: US)
  Receive Date: 20230526
  Receipt Date: 20230526
  Transmission Date: 20230721
  Serious: Yes (Hospitalization)
  Sender: FDA-Public Use
  Company Number: US-INTERCEPT-PM2023000967

PATIENT
  Sex: Female

DRUGS (1)
  1. OCALIVA [Suspect]
     Active Substance: OBETICHOLIC ACID
     Indication: Primary biliary cholangitis
     Dosage: 5 MILLIGRAM, QD
     Route: 048
     Dates: start: 20230120, end: 202304

REACTIONS (3)
  - Intensive care [Not Recovered/Not Resolved]
  - Feeling abnormal [Unknown]
  - Pain [Unknown]

NARRATIVE: CASE EVENT DATE: 20230101
